FAERS Safety Report 14835033 (Version 1)
Quarter: 2018Q2

REPORT INFORMATION
  Report Type: Spontaneous
  Country: DE (occurrence: DE)
  Receive Date: 20180501
  Receipt Date: 20180501
  Transmission Date: 20180711
  Serious: Yes (Hospitalization)
  Sender: FDA-Public Use
  Company Number: DE-CONCORDIA PHARMACEUTICALS INC.-E2B_00011479

PATIENT
  Age: 72 Year
  Sex: Male

DRUGS (14)
  1. TORASEMID [Concomitant]
     Active Substance: TORSEMIDE
     Dosage: 10 MG, 1-0-0-0
  2. PROTAPHANE [Concomitant]
     Active Substance: INSULIN HUMAN
     Dosage: ABENDS
  3. ALLOPURINOL. [Concomitant]
     Active Substance: ALLOPURINOL
     Dosage: 300 MG, 1-0-0-0
  4. CANDESARTAN. [Concomitant]
     Active Substance: CANDESARTAN
     Dosage: 16 MG, 0.5-0-0-0
  5. PREDNISOLONE. [Suspect]
     Active Substance: PREDNISOLONE
     Dosage: NK
  6. AARANE [Concomitant]
     Active Substance: CROMOLYN SODIUM
     Dosage: BEDARF
  7. PANTOPRAZOL [Concomitant]
     Active Substance: PANTOPRAZOLE SODIUM
     Dosage: 40 MG, 1-0-0-0
  8. SIMVASTATIN. [Concomitant]
     Active Substance: SIMVASTATIN
     Dosage: 40 MG, 0-0-1-0
  9. METAMIZOL [Concomitant]
     Active Substance: METAMIZOLE SODIUM
     Dosage: BEDARF
  10. MOXONIDINE [Concomitant]
     Active Substance: MOXONIDINE
     Dosage: 0.3 MG, 0-0-1-0
  11. MELPHALAN. [Suspect]
     Active Substance: MELPHALAN
     Dosage: NK
  12. TAMSULOSIN [Concomitant]
     Active Substance: TAMSULOSIN
     Dosage: 0.4 MG, 1-0-0-0
  13. CLOPIDOGREL [Concomitant]
     Active Substance: CLOPIDOGREL BISULFATE
     Dosage: 75 MG, 1-0-0-0
  14. ACTRAPID [Concomitant]
     Active Substance: INSULIN HUMAN
     Dosage: NACH BZ

REACTIONS (2)
  - Hyperglycaemia [Unknown]
  - Blood glucose increased [Unknown]
